FAERS Safety Report 11113378 (Version 1)
Quarter: 2015Q2

REPORT INFORMATION
  Report Type: Spontaneous
  Country: KR (occurrence: None)
  Receive Date: 20150512
  Receipt Date: 20150512
  Transmission Date: 20150821
  Serious: Yes (Other)
  Sender: FDA-Public Use
  Company Number: 2015-KR-0001

PATIENT
  Age: 69 Year
  Sex: Female

DRUGS (1)
  1. TOREMIFENE [Suspect]
     Active Substance: TOREMIFENE
     Indication: INVASIVE DUCTAL BREAST CARCINOMA
     Dosage: 40 MG PER 1 DAY

REACTIONS (2)
  - Sarcoma uterus [None]
  - Metastases to lung [None]
